FAERS Safety Report 8573153-1 (Version None)
Quarter: 2012Q3

REPORT INFORMATION
  Report Type: 
  Country: None (occurrence: None)
  Receive Date: 20120806
  Receipt Date: 20120727
  Transmission Date: 20120928
  Serious: Yes (Other)
  Sender: FDA-Public Use
  Company Number: US-BAYER-2012-076832

PATIENT
  Age: 38 Year
  Sex: Female
  Weight: 85 kg

DRUGS (9)
  1. TUSSIONEX [Concomitant]
  2. YASMIN [Suspect]
  3. PROPOXYPHENE HCL AND ACETAMINOPHEN [Concomitant]
     Dosage: 100 - 650
  4. DOXYCYCLINE HCL [Concomitant]
     Dosage: 100 MG, UNK
  5. ZOLOFT [Concomitant]
     Dosage: 50 MG, UNK
  6. BENADRYL [Concomitant]
  7. AMBIEN [Concomitant]
     Dosage: 10 MG, UNK
  8. TRAZODONE HYDROCHLORIDE [Concomitant]
     Dosage: 50 MG, UNK
  9. AMOXICILLIN [Concomitant]
     Dosage: 500 MG, UNK

REACTIONS (1)
  - CEREBROVASCULAR ACCIDENT [None]
